FAERS Safety Report 6194309-1 (Version None)
Quarter: 2009Q2

REPORT INFORMATION
  Report Type: 
  Country: None (occurrence: None)
  Receive Date: 20090519
  Receipt Date: 20090506
  Transmission Date: 20091009
  Serious: Yes (Other)
  Sender: FDA-Public Use
  Company Number: US-RANBAXY-2008RR-23825

PATIENT
  Age: 19 Month
  Sex: Female

DRUGS (5)
  1. NAPROXEN [Suspect]
     Indication: JUVENILE ARTHRITIS
  2. PREDNISOLONE [Suspect]
     Indication: JUVENILE ARTHRITIS
     Dosage: UNK
  3. METHOTREXATE [Suspect]
     Indication: JUVENILE ARTHRITIS
     Dosage: 0.8 MG/KG, UNK
  4. METHADONE [Suspect]
     Indication: JUVENILE ARTHRITIS
  5. ADALIMUMAB [Suspect]
     Indication: JUVENILE ARTHRITIS
     Dosage: 1 MG/KG, 1/WEEK

REACTIONS (1)
  - HODGKIN'S DISEASE [None]
